FAERS Safety Report 14632751 (Version 2)
Quarter: 2018Q2

REPORT INFORMATION
  Report Type: Report from Study
  Country: MX (occurrence: MX)
  Receive Date: 20180313
  Receipt Date: 20180404
  Transmission Date: 20180711
  Serious: No
  Sender: FDA-Public Use
  Company Number: MX-INCYTE CORPORATION-2018IN002216

PATIENT

DRUGS (4)
  1. LOMOTIL [Concomitant]
     Active Substance: ATROPINE SULFATE\DIPHENOXYLATE HYDROCHLORIDE
     Indication: PRODUCT USED FOR UNKNOWN INDICATION
     Dosage: UNK UNK, Q12H
     Route: 065
  2. JAKAVI [Suspect]
     Active Substance: RUXOLITINIB
     Indication: BLOOD COUNT ABNORMAL
  3. JAKAVI [Suspect]
     Active Substance: RUXOLITINIB
     Indication: PLATELET COUNT DECREASED
     Dosage: 1 OT, Q12H
     Route: 048
     Dates: start: 20180219
  4. CICLOSPORIN [Concomitant]
     Active Substance: CYCLOSPORINE
     Indication: PRODUCT USED FOR UNKNOWN INDICATION
     Dosage: UNK UNK, Q12H
     Route: 065

REACTIONS (2)
  - Product use in unapproved indication [Unknown]
  - Disease recurrence [Unknown]
